FAERS Safety Report 5823937-5 (Version None)
Quarter: 2008Q3

REPORT INFORMATION
  Report Type: 
  Country: None (occurrence: None)
  Receive Date: 20080724
  Receipt Date: 20080710
  Transmission Date: 20090109
  Serious: Yes (Hospitalization)
  Sender: FDA-Public Use
  Company Number: 233915J08USA

PATIENT
  Age: 41 Year
  Sex: Female
  Weight: 61.6892 kg

DRUGS (1)
  1. REBIF [Suspect]
     Indication: MULTIPLE SCLEROSIS
     Dosage: 22 MCG, 3 IN 1 WEEKS, SUBCUTANEOUS
     Route: 058
     Dates: start: 20070127, end: 20070309

REACTIONS (4)
  - ANAEMIA [None]
  - PAIN IN EXTREMITY [None]
  - THYROID CANCER [None]
  - WEIGHT DECREASED [None]
